FAERS Safety Report 5202274-6 (Version None)
Quarter: 2007Q1

REPORT INFORMATION
  Report Type: 
  Country: None (occurrence: None)
  Receive Date: 20070109
  Receipt Date: 20061227
  Transmission Date: 20070707
  Serious: Yes (Hospitalization)
  Sender: FDA-Public Use
  Company Number: AU-GLAXOSMITHKLINE-B0452786A

PATIENT
  Age: 5 Year
  Sex: Female

DRUGS (17)
  1. MELPHALAN [Suspect]
     Indication: ACUTE MYELOID LEUKAEMIA
     Dosage: 70MGM2 CYCLIC
     Route: 042
  2. SULFAMETHOXAZOLE AND TRIMETHOPRIM [Suspect]
     Route: 065
  3. FRUSEMIDE [Suspect]
     Route: 065
  4. ACETAMINOPHEN [Suspect]
     Route: 065
  5. PREDNISOLONE [Suspect]
     Route: 065
  6. CYCLOSPORINE [Suspect]
     Route: 065
  7. ONDANSETRON [Suspect]
     Route: 065
  8. ITRACONAZOLE [Suspect]
     Route: 065
  9. METRONIDAZOLE [Suspect]
     Route: 065
  10. OMEPRAZOLE [Suspect]
     Route: 065
  11. BUSULPHAN [Suspect]
     Indication: ACUTE MYELOID LEUKAEMIA
     Dosage: 150MGM2 CYCLIC
     Route: 048
  12. BUSCOPAN [Concomitant]
     Route: 065
  13. GENTAMICIN [Concomitant]
     Route: 065
  14. CEPHALOTHIN [Concomitant]
     Route: 065
  15. METOCLOPRAMIDE [Concomitant]
     Route: 065
  16. TICARCILLIN + CLAVULANIC ACID [Concomitant]
     Route: 065
  17. NIFEDIPINE [Concomitant]
     Route: 065

REACTIONS (7)
  - ABDOMINAL PAIN [None]
  - ANAEMIA [None]
  - BLOOD AMYLASE INCREASED [None]
  - HYPOTENSION [None]
  - LIPASE INCREASED [None]
  - OEDEMATOUS PANCREATITIS [None]
  - PANCREATITIS HAEMORRHAGIC [None]
